FAERS Safety Report 9030571 (Version 1)
Quarter: 2013Q1

REPORT INFORMATION
  Report Type: Report from Study
  Country: US (occurrence: US)
  Receive Date: 20130122
  Receipt Date: 20130122
  Transmission Date: 20140127
  Serious: Yes (Hospitalization)
  Sender: FDA-Public Use
  Company Number: US-US-EMD SERONO, INC.-7187937

PATIENT
  Sex: Male

DRUGS (1)
  1. REBIF [Suspect]
     Indication: PRODUCT USED FOR UNKNOWN INDICATION
     Route: 058
     Dates: start: 20050713

REACTIONS (2)
  - Rotator cuff syndrome [Unknown]
  - Fall [Unknown]
